FAERS Safety Report 10134107 (Version 2)
Quarter: 2014Q2

REPORT INFORMATION
  Report Type: Spontaneous
  Country: US (occurrence: US)
  Receive Date: 20140428
  Receipt Date: 20140528
  Transmission Date: 20141212
  Serious: Yes (Other)
  Sender: FDA-Public Use
  Company Number: US-FRI-1000066741

PATIENT
  Age: 81 Year
  Sex: Male

DRUGS (7)
  1. VIIBRYD [Suspect]
     Indication: DEPRESSION
     Dosage: 10 MG
     Route: 048
     Dates: start: 20140402, end: 20140408
  2. VIIBRYD [Suspect]
     Dosage: 20 MG
     Route: 048
     Dates: start: 20140409, end: 20140415
  3. VIIBRYD [Suspect]
     Indication: DEPRESSION
     Dosage: 40 MG
     Route: 048
     Dates: start: 20140416, end: 201405
  4. TORSEMIDE [Concomitant]
  5. KLOR-CON [Concomitant]
     Dosage: 10 MEQ
     Route: 048
  6. METOPROLOL [Concomitant]
     Dosage: 25 MG
     Route: 048
  7. TYLENOL [Concomitant]
     Indication: MUSCULOSKELETAL DISCOMFORT
     Dosage: AS NEEDED

REACTIONS (9)
  - Weight increased [Recovered/Resolved]
  - Diarrhoea [Recovered/Resolved]
  - Increased appetite [Recovered/Resolved]
  - Depression [Recovered/Resolved]
  - Ejaculation delayed [Recovered/Resolved]
  - Restless legs syndrome [Recovered/Resolved]
  - Dry mouth [Recovered/Resolved]
  - Lip ulceration [Recovered/Resolved]
  - Mouth ulceration [Recovered/Resolved]
